FAERS Safety Report 6501474-2 (Version None)
Quarter: 2009Q4

REPORT INFORMATION
  Report Type: 
  Country: None (occurrence: None)
  Receive Date: 20091216
  Receipt Date: 20091211
  Transmission Date: 20100525
  Serious: Yes (Other)
  Sender: FDA-Public Use
  Company Number: DE-BRISTOL-MYERS SQUIBB COMPANY-14891006

PATIENT
  Sex: Female

DRUGS (1)
  1. HYDROXYUREA [Suspect]

REACTIONS (2)
  - RENAL FAILURE [None]
  - RENAL HAEMORRHAGE [None]
